FAERS Safety Report 6959752 (Version 5)
Quarter: 2015Q3

REPORT INFORMATION
  Report Type: Spontaneous
  Country: DE (occurrence: DE)
  Receive Date: 20090403
  Receipt Date: 20150924
  Transmission Date: 20151125
  Serious: Yes (Death, Other)
  Sender: FDA-Public Use
  Company Number: DE-ROXANE LABORATORIES, INC.-2009-RO-00318RO

PATIENT
  Age: 3 Year
  Sex: Male
  Weight: 14 kg

DRUGS (7)
  1. IBUPROFEN. [Suspect]
     Active Substance: IBUPROFEN
     Indication: PYREXIA
  2. IVY EXTRACT [Suspect]
     Active Substance: IVY EXTRACT
     Indication: PYREXIA
  3. IBUPROFEN. [Suspect]
     Active Substance: IBUPROFEN
     Indication: COUGH
     Route: 065
  4. IVY EXTRACT [Suspect]
     Active Substance: IVY EXTRACT
     Indication: COUGH
     Route: 065
  5. ACETAMINOPHEN. [Suspect]
     Active Substance: ACETAMINOPHEN
     Indication: COUGH
     Route: 065
  6. CODEINE SULFATE. [Suspect]
     Active Substance: CODEINE SULFATE
     Indication: ANTITUSSIVE THERAPY
     Route: 065
  7. ACETAMINOPHEN. [Suspect]
     Active Substance: ACETAMINOPHEN
     Indication: PYREXIA

REACTIONS (7)
  - Death [Fatal]
  - Drug administration error [Unknown]
  - Accidental overdose [Unknown]
  - Toxicity to various agents [Unknown]
  - Vomiting [Unknown]
  - Aspiration [Unknown]
  - Brain oedema [Unknown]
